FAERS Safety Report 22124640 (Version 1)
Quarter: 2023Q1

REPORT INFORMATION
  Report Type: Spontaneous
  Country: CA (occurrence: CA)
  Receive Date: 20230322
  Receipt Date: 20230322
  Transmission Date: 20230417
  Serious: Yes (Hospitalization, Other)
  Sender: FDA-Public Use
  Company Number: CA-002147023-NVSC2023CA059681

PATIENT
  Age: 3 Year
  Sex: Female

DRUGS (8)
  1. SOMATROPIN [Suspect]
     Active Substance: SOMATROPIN
     Indication: Prader-Willi syndrome
     Dosage: 1 MG
     Route: 058
  2. SOMATROPIN [Suspect]
     Active Substance: SOMATROPIN
     Indication: Growth hormone deficiency
     Dosage: 700 UG
     Route: 042
  3. SOMATROPIN [Suspect]
     Active Substance: SOMATROPIN
     Dosage: 0.5 MG
     Route: 058
  4. SOMATROPIN [Suspect]
     Active Substance: SOMATROPIN
     Dosage: 700 UG
     Route: 042
  5. SOMATROPIN [Suspect]
     Active Substance: SOMATROPIN
     Dosage: 700 UG
     Route: 042
  6. LEVOTHYROXINE SODIUM [Concomitant]
     Active Substance: LEVOTHYROXINE SODIUM
     Indication: Hypothyroidism
     Dosage: 37.5 UG, QD
     Route: 048
  7. VITAMIN D [Concomitant]
     Active Substance: VITAMIN D NOS
     Indication: Product used for unknown indication
     Dosage: 1000 IU, QD
     Route: 048
  8. SOMATROPIN [Concomitant]
     Active Substance: SOMATROPIN
     Indication: Product used for unknown indication
     Dosage: UNK
     Route: 065

REACTIONS (8)
  - COVID-19 [Not Recovered/Not Resolved]
  - Cough [Not Recovered/Not Resolved]
  - Dehydration [Not Recovered/Not Resolved]
  - Diarrhoea [Not Recovered/Not Resolved]
  - Obstructive sleep apnoea syndrome [Not Recovered/Not Resolved]
  - Pyrexia [Not Recovered/Not Resolved]
  - Snoring [Not Recovered/Not Resolved]
  - Tonsillar disorder [Not Recovered/Not Resolved]
